FAERS Safety Report 5819400-8 (Version None)
Quarter: 2008Q3

REPORT INFORMATION
  Report Type: 
  Country: None (occurrence: None)
  Receive Date: 20080717
  Receipt Date: 20080703
  Transmission Date: 20090109
  Serious: Yes (Death)
  Sender: FDA-Public Use
  Company Number: VUSION0800013

PATIENT
  Age: 21 Year
  Sex: Male

DRUGS (1)
  1. VUSION(MICONAZOLE NITRATE) OINTMENT [Suspect]
     Dosage: SINGLE EXPOSURE, RESPIRATORY
     Route: 055

REACTIONS (22)
  - ACUTE RESPIRATORY DISTRESS SYNDROME [None]
  - CHEST X-RAY ABNORMAL [None]
  - HAEMODYNAMIC INSTABILITY [None]
  - HEART RATE INCREASED [None]
  - HEPATIC CONGESTION [None]
  - HYPERCAPNIA [None]
  - HYPOTENSION [None]
  - HYPOXIA [None]
  - INTRACARDIAC THROMBUS [None]
  - MUCOUS MEMBRANE DISORDER [None]
  - MULTI-ORGAN FAILURE [None]
  - OLIGURIA [None]
  - PERITONEAL EFFUSION [None]
  - PLEURAL EFFUSION [None]
  - PNEUMONITIS [None]
  - PRODUCTIVE COUGH [None]
  - PULMONARY CONGESTION [None]
  - PULMONARY OEDEMA [None]
  - RESPIRATORY FAILURE [None]
  - RESPIRATORY RATE INCREASED [None]
  - SPLEEN CONGESTION [None]
  - TACHYPNOEA [None]
